FAERS Safety Report 5960876-3 (Version None)
Quarter: 2008Q4

REPORT INFORMATION
  Report Type: 
  Country: None (occurrence: None)
  Receive Date: 20081118
  Receipt Date: 20081110
  Transmission Date: 20090506
  Serious: Yes (Hospitalization)
  Sender: FDA-Public Use
  Company Number: 2008SP022849

PATIENT
  Age: 58 Year
  Sex: Male

DRUGS (1)
  1. PEGETRON (PEGINTERFERON ALFA-2B W/RIBAVIRIN) (PEGYLATED INTERFERON ALF [Suspect]
     Dosage: 0.5 ML;  ;SC, ;PO
     Route: 058

REACTIONS (2)
  - ASTHENIA [None]
  - BLOOD COUNT ABNORMAL [None]
